FAERS Safety Report 9651122 (Version 1)
Quarter: 2013Q4

REPORT INFORMATION
  Report Type: Spontaneous
  Country: US (occurrence: None)
  Receive Date: 20131028
  Receipt Date: 20131028
  Transmission Date: 20140711
  Serious: Yes (Life-Threatening)
  Sender: FDA-Public Use
  Company Number: None

PATIENT
  Sex: 0

DRUGS (1)
  1. INVEGA [Suspect]
     Indication: DEPRESSION
     Dosage: 6MG AND UP, 2 TIMES A DAY, LAST 3 YRS

REACTIONS (2)
  - Neoplasm malignant [None]
  - Sunburn [None]
